FAERS Safety Report 13710678 (Version 1)
Quarter: 2017Q3

REPORT INFORMATION
  Report Type: Spontaneous
  Country: US (occurrence: US)
  Receive Date: 20170702
  Receipt Date: 20170702
  Transmission Date: 20171127
  Serious: No
  Sender: FDA-Public Use
  Company Number: None

PATIENT
  Age: 59 Year
  Sex: Male
  Weight: 76.5 kg

DRUGS (2)
  1. KLONOPIN [Concomitant]
     Active Substance: CLONAZEPAM
  2. CLONAZAPAM [Suspect]
     Active Substance: CLONAZEPAM
     Indication: ANXIETY
     Dosage: ?          OTHER STRENGTH:MG;QUANTITY:3 CAPSULE(S);?
     Route: 048

REACTIONS (9)
  - Hypertension [None]
  - Pruritus [None]
  - Suicidal ideation [None]
  - Anxiety [None]
  - Agoraphobia [None]
  - Rash [None]
  - Tinnitus [None]
  - Fear [None]
  - Skin burning sensation [None]
